FAERS Safety Report 16928137 (Version 2)
Quarter: 2019Q4

REPORT INFORMATION
  Report Type: Spontaneous
  Country: US (occurrence: US)
  Receive Date: 20191017
  Receipt Date: 20191225
  Transmission Date: 20200122
  Serious: Yes (Hospitalization)
  Sender: FDA-Public Use
  Company Number: US-ROCHE-2432632

PATIENT
  Sex: Male

DRUGS (1)
  1. ACTEMRA [Suspect]
     Active Substance: TOCILIZUMAB
     Indication: BONE DISORDER
     Dosage: INJECT 0.9 ML (SUBCUTANEOUSLY EVERY 14 DAYS)
     Route: 058
     Dates: start: 20190507

REACTIONS (2)
  - Food poisoning [Not Recovered/Not Resolved]
  - Colitis [Not Recovered/Not Resolved]
